FAERS Safety Report 24899600 (Version 2)
Quarter: 2025Q1

REPORT INFORMATION
  Report Type: Spontaneous
  Country: DE (occurrence: DE)
  Receive Date: 20250129
  Receipt Date: 20250211
  Transmission Date: 20250409
  Serious: Yes (Other)
  Sender: SUNOVION
  Company Number: None

PATIENT

DRUGS (7)
  1. VIBEGRON [Suspect]
     Active Substance: VIBEGRON
     Indication: Bladder irritation
     Route: 048
     Dates: start: 20241212, end: 20241219
  2. VIBEGRON [Suspect]
     Active Substance: VIBEGRON
     Indication: Micturition urgency
  3. VIBEGRON [Suspect]
     Active Substance: VIBEGRON
     Indication: Nocturia
  4. VIBEGRON [Suspect]
     Active Substance: VIBEGRON
     Indication: Bladder irritation
  5. VIBEGRON [Suspect]
     Active Substance: VIBEGRON
     Indication: Hypertonic bladder
  6. AMLODIPINE BESYLATE [Concomitant]
     Active Substance: AMLODIPINE BESYLATE
     Indication: Blood pressure measurement
     Dosage: 2.5 MG, HALF A TABLET DAILY
     Route: 065
  7. HYDROXYCHLOROQUINE [Concomitant]
     Active Substance: HYDROXYCHLOROQUINE
     Indication: Rheumatic disorder
     Dosage: 200 MG, QD (1/DAY)
     Route: 065

REACTIONS (2)
  - Hypertensive crisis [Recovered/Resolved]
  - Hot flush [Unknown]

NARRATIVE: CASE EVENT DATE: 20241212
